FAERS Safety Report 14285861 (Version 1)
Quarter: 2017Q4

REPORT INFORMATION
  Report Type: Spontaneous
  Country: CN (occurrence: CN)
  Receive Date: 20171214
  Receipt Date: 20171214
  Transmission Date: 20180321
  Serious: Yes (Hospitalization)
  Sender: FDA-Public Use
  Company Number: CN-B.I. PHARMACEUTICALS,INC./RIDGEFIELD-2017-BI-066457

PATIENT
  Age: 48 Year
  Sex: Male
  Weight: 60 kg

DRUGS (8)
  1. SODIUM CHLORIDE. [Concomitant]
     Active Substance: SODIUM CHLORIDE
     Indication: PRODUCT USED FOR UNKNOWN INDICATION
     Route: 065
     Dates: start: 20171002, end: 20171017
  2. GLUCOSE INJECTION [Concomitant]
     Active Substance: DEXTROSE
     Indication: PRODUCT USED FOR UNKNOWN INDICATION
     Route: 065
     Dates: start: 20170930, end: 20171017
  3. HARNAL [Suspect]
     Active Substance: TAMSULOSIN HYDROCHLORIDE
     Indication: BENIGN PROSTATIC HYPERPLASIA
     Route: 048
     Dates: start: 20171012, end: 20171024
  4. VANCOMYCIN HYDROCHLORIDE. [Suspect]
     Active Substance: VANCOMYCIN HYDROCHLORIDE
     Route: 042
     Dates: end: 20171023
  5. CEFTAZIDIME. [Suspect]
     Active Substance: CEFTAZIDIME
     Route: 042
     Dates: end: 20171023
  6. VANCOMYCIN HYDROCHLORIDE. [Suspect]
     Active Substance: VANCOMYCIN HYDROCHLORIDE
     Indication: INFECTION
     Route: 042
     Dates: start: 20170930, end: 20171017
  7. CEFTAZIDIME. [Suspect]
     Active Substance: CEFTAZIDIME
     Indication: INFECTION
     Route: 042
     Dates: start: 20171002, end: 20171017
  8. CELECOXIB. [Suspect]
     Active Substance: CELECOXIB
     Indication: ANALGESIC THERAPY
     Route: 048
     Dates: start: 20171016, end: 20171023

REACTIONS (5)
  - Generalised erythema [Recovering/Resolving]
  - Leukopenia [Recovering/Resolving]
  - Rash [Recovering/Resolving]
  - Pruritus [Recovering/Resolving]
  - Transaminases increased [Recovering/Resolving]

NARRATIVE: CASE EVENT DATE: 20171016
